FAERS Safety Report 13246520 (Version 3)
Quarter: 2017Q2

REPORT INFORMATION
  Report Type: Spontaneous
  Country: US (occurrence: US)
  Receive Date: 20170217
  Receipt Date: 20170623
  Transmission Date: 20170830
  Serious: No
  Sender: FDA-Public Use
  Company Number: US-TEVA-735143ACC

PATIENT
  Age: 56 Year
  Sex: Female

DRUGS (12)
  1. MELATONIN [Concomitant]
     Active Substance: MELATONIN
  2. ATORVASTATIN [Concomitant]
     Active Substance: ATORVASTATIN
  3. GABAPENTIN. [Concomitant]
     Active Substance: GABAPENTIN
  4. MULTI VITAMIN [Concomitant]
     Active Substance: VITAMINS
  5. DULOXETINE. [Concomitant]
     Active Substance: DULOXETINE
  6. KLOR-CON M10 [Concomitant]
     Active Substance: POTASSIUM CHLORIDE
  7. VITAMIN B12 [Concomitant]
     Active Substance: CYANOCOBALAMIN
  8. HYDROCHLOROT [Concomitant]
     Active Substance: HYDROCHLOROTHIAZIDE
  9. COPAXONE [Suspect]
     Active Substance: GLATIRAMER ACETATE
     Indication: MULTIPLE SCLEROSIS
     Route: 058
     Dates: start: 20150818, end: 20170310
  10. POTASSIUM [Concomitant]
     Active Substance: POTASSIUM
  11. BENZONATATE. [Concomitant]
     Active Substance: BENZONATATE
  12. VITAMIN D [Concomitant]
     Active Substance: CHOLECALCIFEROL

REACTIONS (3)
  - Mobility decreased [Not Recovered/Not Resolved]
  - Drug ineffective [Unknown]
  - Fall [Unknown]

NARRATIVE: CASE EVENT DATE: 20170329
